FAERS Safety Report 7598629-5 (Version None)
Quarter: 2011Q3

REPORT INFORMATION
  Report Type: 
  Country: None (occurrence: None)
  Receive Date: 20110710
  Receipt Date: 20110706
  Transmission Date: 20111222
  Serious: Yes (Hospitalization, Other)
  Sender: FDA-Public Use
  Company Number: US-AMGEN LTD.-USASP2010000198

PATIENT
  Age: 82 Year
  Sex: Male

DRUGS (14)
  1. PROTONIX [Concomitant]
     Dosage: 40 MG, QD
     Route: 048
  2. SEPTRA DS [Concomitant]
     Dosage: 1 DF, 3 TIMES/WK
     Route: 048
  3. LANTUS [Concomitant]
  4. RITUXIMAB [Concomitant]
     Dosage: 335 A?G/KG, UNK
     Dates: start: 20090912
  5. LASIX [Concomitant]
     Dosage: 40 MG, QD
     Route: 048
  6. METOPROLOL SUCCINATE [Concomitant]
     Dosage: 50 MG, UNK
     Route: 048
  7. FOLIC ACID [Concomitant]
     Dosage: 1 MG, UNK
     Route: 048
  8. TOPROL-XL [Concomitant]
     Dosage: 50 MG, QD
     Route: 048
  9. TYLENOL (CAPLET) [Concomitant]
  10. MULTIVITAMIN                       /00097801/ [Concomitant]
     Dosage: 1 DF, QD
     Route: 048
  11. NPLATE [Suspect]
     Indication: IDIOPATHIC THROMBOCYTOPENIC PURPURA
     Dosage: 335 A?G, UNK
     Dates: start: 20091001, end: 20091120
  12. CORTICOSTEROIDS [Concomitant]
     Dosage: UNK
     Dates: start: 20090907
  13. ASPIRIN [Concomitant]
  14. FLOMAX [Concomitant]
     Dosage: 0.4 MG, QD
     Route: 048

REACTIONS (12)
  - ATRIAL FIBRILLATION [None]
  - PLATELET COUNT INCREASED [None]
  - HYPERLIPIDAEMIA [None]
  - CARDIOMYOPATHY [None]
  - HYPERTENSION [None]
  - EMBOLISM [None]
  - PAIN IN EXTREMITY [None]
  - FALL [None]
  - CEREBROVASCULAR ACCIDENT [None]
  - THROMBOSIS [None]
  - CAROTID ARTERY STENOSIS [None]
  - HEARING IMPAIRED [None]
